FAERS Safety Report 8463177-7 (Version None)
Quarter: 2012Q2

REPORT INFORMATION
  Report Type: 
  Country: None (occurrence: None)
  Receive Date: 20120625
  Receipt Date: 20120618
  Transmission Date: 20120825
  Serious: No
  Sender: FDA-Public Use
  Company Number: US-PFIZER INC-2012127002

PATIENT
  Age: 72 Year
  Sex: Male

DRUGS (1)
  1. ATORVASTATIN CALCIUM [Suspect]
     Dosage: 20 MG, 1X/DAY, AT BEDTIME
     Route: 048
     Dates: start: 20120301

REACTIONS (9)
  - PRURITUS [None]
  - MIDDLE INSOMNIA [None]
  - MEMORY IMPAIRMENT [None]
  - SOMNOLENCE [None]
  - DECREASED APPETITE [None]
  - COUGH [None]
  - FEELING COLD [None]
  - DISTURBANCE IN ATTENTION [None]
  - PYREXIA [None]
